FAERS Safety Report 9136404 (Version 1)
Quarter: 2013Q1

REPORT INFORMATION
  Report Type: Spontaneous
  Country: US (occurrence: US)
  Receive Date: 20130219
  Receipt Date: 20130219
  Transmission Date: 20140127
  Serious: No
  Sender: FDA-Public Use
  Company Number: US-BRISTOL-MYERS SQUIBB COMPANY-16833212

PATIENT
  Age: 60 Year
  Sex: Female
  Weight: 127 kg

DRUGS (8)
  1. ORENCIA [Suspect]
     Indication: RHEUMATOID ARTHRITIS
     Dosage: TOTAL INF:8; LAST INF: 16JUL2012
     Route: 042
     Dates: start: 201109
  2. SOTALOL [Concomitant]
  3. LASIX [Concomitant]
  4. DIGOXIN [Concomitant]
  5. POTASSIUM CHLORIDE [Concomitant]
  6. SYNTHROID [Concomitant]
  7. WELLBUTRIN [Concomitant]
  8. KLONOPIN [Concomitant]

REACTIONS (3)
  - Nausea [Not Recovered/Not Resolved]
  - Abdominal pain [Not Recovered/Not Resolved]
  - Decreased appetite [Not Recovered/Not Resolved]
